FAERS Safety Report 11663940 (Version 3)
Quarter: 2015Q4

REPORT INFORMATION
  Report Type: Report from Study
  Country: US (occurrence: US)
  Receive Date: 20151027
  Receipt Date: 20151029
  Transmission Date: 20160304
  Serious: Yes (Hospitalization, Disabling, Other)
  Sender: FDA-Public Use
  Company Number: PHEH2015US000847

PATIENT
  Age: 5 Year
  Sex: Female
  Weight: 15 kg

DRUGS (2)
  1. EXJADE [Suspect]
     Active Substance: DEFERASIROX
     Indication: APLASIA PURE RED CELL
     Dosage: 4 TABLET (500 MG) EVERY OTHER DAY AND 3 TABLETS (385 MG) EVERY OTHER DAY
     Route: 048
     Dates: start: 201310
  2. EXJADE [Suspect]
     Active Substance: DEFERASIROX
     Indication: CONGENITAL APLASTIC ANAEMIA
     Dosage: (500 MG) ALTERNATING WITH (375 MG)
     Route: 048
     Dates: start: 201401, end: 201408

REACTIONS (5)
  - Dehydration [Recovered/Resolved]
  - Electrolyte imbalance [Recovered/Resolved]
  - Fanconi syndrome acquired [Recovered/Resolved]
  - Diarrhoea [Recovered/Resolved]
  - Renal failure [Unknown]

NARRATIVE: CASE EVENT DATE: 20140328
